FAERS Safety Report 8288869-4 (Version None)
Quarter: 2012Q2

REPORT INFORMATION
  Report Type: 
  Country: None (occurrence: None)
  Receive Date: 20120411
  Receipt Date: 20120328
  Transmission Date: 20120825
  Serious: Yes (Life-Threatening)
  Sender: FDA-Public Use
  Company Number: 2012S1000025

PATIENT

DRUGS (1)
  1. KRYSTEXXA [Suspect]
     Indication: GOUT

REACTIONS (2)
  - CEREBROVASCULAR ACCIDENT [None]
  - BACK PAIN [None]
